FAERS Safety Report 19188669 (Version 1)
Quarter: 2021Q2

REPORT INFORMATION
  Report Type: Spontaneous
  Country: US (occurrence: US)
  Receive Date: 20210427
  Receipt Date: 20210427
  Transmission Date: 20210717
  Serious: No
  Sender: FDA-Public Use
  Company Number: None

PATIENT
  Age: 79 Year
  Sex: Male
  Weight: 85.5 kg

DRUGS (1)
  1. RIGHT GUARD ANTIPERSPIRANT (ALUMINUM ZIRCONIUM OCTACHLOROHYDREX GLY) [Suspect]
     Active Substance: ALUMINUM ZIRCONIUM OCTACHLOROHYDREX GLY
     Indication: PERSONAL HYGIENE
     Route: 061
     Dates: start: 20210418, end: 20210426

REACTIONS (3)
  - Application site rash [None]
  - Application site erythema [None]
  - Application site pain [None]

NARRATIVE: CASE EVENT DATE: 20210426
